FAERS Safety Report 7963221-7 (Version None)
Quarter: 2011Q4

REPORT INFORMATION
  Report Type: 
  Country: None (occurrence: None)
  Receive Date: 20111208
  Receipt Date: 20111129
  Transmission Date: 20120403
  Serious: No
  Sender: FDA-Public Use
  Company Number: US-BIOGENIDEC-2011BI045186

PATIENT
  Sex: Female

DRUGS (1)
  1. AVONEX [Suspect]
     Indication: MULTIPLE SCLEROSIS
     Route: 030

REACTIONS (8)
  - ARTHROPATHY [None]
  - WOUND SECRETION [None]
  - FEAR OF NEEDLES [None]
  - HYPOAESTHESIA [None]
  - WOUND DEHISCENCE [None]
  - HAEMORRHAGE [None]
  - CARTILAGE INJURY [None]
  - JOINT SWELLING [None]
